FAERS Safety Report 5481863-8 (Version None)
Quarter: 2007Q4

REPORT INFORMATION
  Report Type: 
  Country: None (occurrence: None)
  Receive Date: 20071010
  Receipt Date: 20070925
  Transmission Date: 20080405
  Serious: No
  Sender: FDA-Public Use
  Company Number: US-BOEHRINGER INGELHEIM PHARMACEUTICALS, INC.-2007-BP-20531BP

PATIENT
  Age: 75 Year
  Sex: Male

DRUGS (6)
  1. FLOMAX [Suspect]
     Indication: BENIGN PROSTATIC HYPERPLASIA
     Route: 048
     Dates: start: 20070401
  2. FINASTERIDE [Suspect]
     Indication: BENIGN PROSTATIC HYPERPLASIA
     Dates: start: 20070401
  3. SAW PLAMETO [Concomitant]
  4. PYGEUM [Concomitant]
  5. BETA SITOSTEROL [Concomitant]
  6. AMBROTOSE [Concomitant]

REACTIONS (2)
  - DIZZINESS [None]
  - URINE FLOW DECREASED [None]
